FAERS Safety Report 7815005-8 (Version None)
Quarter: 2011Q4

REPORT INFORMATION
  Report Type: 
  Country: None (occurrence: None)
  Receive Date: 20111014
  Receipt Date: 20111009
  Transmission Date: 20120403
  Serious: Yes (Hospitalization)
  Sender: FDA-Public Use
  Company Number: DE-GLAXOSMITHKLINE-B0751418A

PATIENT
  Age: 73 Year
  Sex: Male

DRUGS (18)
  1. DEXAMETHASONE [Concomitant]
     Indication: PROPHYLAXIS OF NAUSEA AND VOMITING
     Dosage: 8MG AS REQUIRED
     Dates: start: 20110809, end: 20110809
  2. XALATAN [Concomitant]
     Indication: GLAUCOMA
     Dosage: 1DROP PER DAY
  3. PANTOPRAZOLE SODIUM [Concomitant]
     Indication: GASTRITIS PROPHYLAXIS
     Dosage: 40MG PER DAY
     Route: 065
     Dates: start: 20101228
  4. ZOFRAN [Concomitant]
     Indication: PROPHYLAXIS OF NAUSEA AND VOMITING
     Dates: start: 20110809, end: 20110809
  5. METOPROLOL TARTRATE [Concomitant]
     Indication: HYPERTENSION
     Dosage: 25MG PER DAY
     Dates: start: 20040601
  6. OXALIPLATIN [Suspect]
     Indication: PANCREATIC CARCINOMA
     Route: 065
  7. FLUOROURACIL [Suspect]
     Indication: PANCREATIC CARCINOMA
     Route: 065
  8. FENOTEROL [Concomitant]
     Indication: CHRONIC OBSTRUCTIVE PULMONARY DISEASE
     Dates: start: 20110626
  9. LEUCOVORIN CALCIUM [Suspect]
     Indication: PANCREATIC CARCINOMA
     Route: 065
  10. TPN [Suspect]
     Indication: CACHEXIA
     Dosage: 1800ML PER DAY
     Route: 042
     Dates: start: 20110812
  11. ENOXAPARIN SODIUM [Concomitant]
     Indication: THROMBOSIS
     Dosage: .6ML PER DAY
     Dates: start: 20110412
  12. LEVOTHYROXINE SODIUM [Concomitant]
     Indication: HYPOTHYROIDISM
     Dosage: 150MCG PER DAY
     Dates: start: 20030601
  13. METFORMIN HYDROCHLORIDE [Concomitant]
     Indication: DIABETES MELLITUS
     Dosage: 850MG TWICE PER DAY
     Dates: start: 20030601
  14. REPAGLINIDE [Concomitant]
     Indication: DIABETES MELLITUS
     Dosage: 1MG PER DAY
     Dates: start: 20110426, end: 20110815
  15. COSOPT [Concomitant]
     Indication: GLAUCOMA
     Dosage: 1DROP TWICE PER DAY
  16. TORSEMIDE [Concomitant]
     Indication: OEDEMA
     Dosage: 10MG PER DAY
     Route: 065
  17. LAPATINIB [Suspect]
     Indication: PANCREATIC CARCINOMA
     Route: 048
  18. CREON [Concomitant]
     Indication: PANCREATIC INSUFFICIENCY
     Dosage: 40000UNIT AS REQUIRED
     Dates: start: 20101228

REACTIONS (1)
  - HYPERGLYCAEMIA [None]
